FAERS Safety Report 6338536-9 (Version None)
Quarter: 2009Q3

REPORT INFORMATION
  Report Type: 
  Country: None (occurrence: None)
  Receive Date: 20090901
  Receipt Date: 20090819
  Transmission Date: 20100115
  Serious: Yes (Hospitalization)
  Sender: FDA-Public Use
  Company Number: 8050816

PATIENT
  Age: 65 Year
  Sex: Female

DRUGS (2)
  1. KEPPRA [Suspect]
  2. VIMPAT [Suspect]

REACTIONS (2)
  - HYPERCALCAEMIA [None]
  - RENAL FAILURE [None]
